FAERS Safety Report 8273877-X (Version None)
Quarter: 2012Q2

REPORT INFORMATION
  Report Type: 
  Country: None (occurrence: None)
  Receive Date: 20120403
  Receipt Date: 20120403
  Transmission Date: 20120825
  Serious: Yes (Hospitalization)
  Sender: FDA-Public Use
  Company Number: None

PATIENT
  Age: 76 Year
  Sex: Male
  Weight: 85.5 kg

DRUGS (2)
  1. VANCOMYCIN [Suspect]
     Indication: OSTEOMYELITIS
     Dosage: 1250 MG BID IV
     Route: 042
     Dates: start: 20120111, end: 20120117
  2. PIPERACILLIN AND TAZOBACTAM [Suspect]
     Indication: OSTEOMYELITIS
     Dosage: 2.25 GM TID IV
     Route: 042
     Dates: start: 20120111, end: 20120117

REACTIONS (2)
  - NEPHRITIS [None]
  - RENAL FAILURE ACUTE [None]
